FAERS Safety Report 18621967 (Version 1)
Quarter: 2020Q4

REPORT INFORMATION
  Report Type: Spontaneous
  Country: GB (occurrence: GB)
  Receive Date: 20201216
  Receipt Date: 20201216
  Transmission Date: 20210114
  Serious: Yes (Hospitalization, Other)
  Sender: FDA-Public Use
  Company Number: GB-SUN PHARMACEUTICAL INDUSTRIES LTD-2020RR-271319

PATIENT
  Age: 57 Year
  Sex: Female
  Weight: 79.5 kg

DRUGS (19)
  1. CLOZARIL [Suspect]
     Active Substance: CLOZAPINE
     Dosage: 4.2 GRAM, QD, 4.2 G, QD
     Route: 048
     Dates: start: 20200628, end: 20200628
  2. CLOZARIL [Suspect]
     Active Substance: CLOZAPINE
     Indication: SCHIZOPHRENIA
     Dosage: 600 MILLIGRAM, QD, 300 MG, BID
     Route: 048
     Dates: start: 20050118, end: 20200628
  3. MIRTAZAPINE. [Suspect]
     Active Substance: MIRTAZAPINE
     Dosage: 45 MILLIGRAM, QD
     Route: 048
  4. NAPROXEN. [Suspect]
     Active Substance: NAPROXEN
     Dosage: 21 GRAM, UNK
     Route: 048
     Dates: start: 20200628, end: 20200628
  5. AMLODIPINE [Suspect]
     Active Substance: AMLODIPINE BESYLATE
     Dosage: 70 MILLIGRAM, UNK
     Route: 048
     Dates: start: 20200628, end: 20200628
  6. MIRTAZAPINE. [Suspect]
     Active Substance: MIRTAZAPINE
     Indication: DEPRESSION
     Dosage: 315 MILLIGRAM, UNK
     Route: 048
     Dates: start: 20200628, end: 20200628
  7. ADCAL D3 [Concomitant]
     Active Substance: CALCIUM CARBONATE\CHOLECALCIFEROL
     Indication: SUPPLEMENTATION THERAPY
     Dosage: 2 DOSAGE FORM, BID, 750MG/100 UNITS
     Route: 048
  8. SALBUTAMOL [Concomitant]
     Active Substance: ALBUTEROL
     Indication: CHRONIC OBSTRUCTIVE PULMONARY DISEASE
     Dosage: 1-2 PUFFS QDS/ PRN, INHALER ()
     Route: 048
  9. LANSOPRAZOLE. [Suspect]
     Active Substance: LANSOPRAZOLE
     Dosage: 105 MILLIGRAM, UNK
     Route: 048
     Dates: start: 20200628, end: 20200628
  10. PARACETAMOL [Suspect]
     Active Substance: ACETAMINOPHEN
     Indication: ARTHRITIS
     Dosage: 15 GRAM, UNK
     Route: 048
     Dates: start: 20200628, end: 20200628
  11. HYALURONATE SODIUM [Concomitant]
     Active Substance: HYALURONATE SODIUM
     Indication: DRY SKIN
     Dosage: UNK ()
     Route: 061
  12. NAPROXEN. [Suspect]
     Active Substance: NAPROXEN
     Indication: SCIATICA
     Dosage: 1000 MILLIGRAM, QD, 500 MG, BID
     Route: 048
  13. AMLODIPINE [Suspect]
     Active Substance: AMLODIPINE BESYLATE
     Indication: HYPERTENSION
     Dosage: 5 MILLIGRAM, QD
     Route: 048
  14. LANSOPRAZOLE. [Suspect]
     Active Substance: LANSOPRAZOLE
     Indication: PROPHYLAXIS AGAINST GASTROINTESTINAL ULCER
     Dosage: 15 MILLIGRAM, QD
     Route: 048
  15. PARACETAMOL [Suspect]
     Active Substance: ACETAMINOPHEN
     Dosage: 500 MG TO 1 GRAM, QDS, PRN ()
     Route: 048
  16. BECLOMETASONE [Concomitant]
     Active Substance: BECLOMETHASONE DIPROPIONATE
     Indication: CHRONIC OBSTRUCTIVE PULMONARY DISEASE
     Dosage: 2 PUFFS, BID, INHALER ()
     Route: 048
  17. AQUADERM  /00567502/ [Concomitant]
     Indication: DRY SKIN
     Dosage: ASD, ASD ()
     Route: 061
  18. CLOZARIL [Suspect]
     Active Substance: CLOZAPINE
     Dosage: 400 MILLIGRAM, QD, 200 MG, BID
     Route: 048
     Dates: start: 2020
  19. ACETYLCYSTEINE. [Concomitant]
     Active Substance: ACETYLCYSTEINE
     Indication: PRODUCT USED FOR UNKNOWN INDICATION
     Dosage: UNK ()
     Route: 065

REACTIONS (3)
  - Sinus tachycardia [Unknown]
  - Overdose [Recovering/Resolving]
  - Haemorrhage [Unknown]

NARRATIVE: CASE EVENT DATE: 2020
